FAERS Safety Report 5002113-2 (Version None)
Quarter: 2006Q2

REPORT INFORMATION
  Report Type: 
  Country: None (occurrence: None)
  Receive Date: 20060515
  Receipt Date: 20060503
  Transmission Date: 20061013
  Serious: Yes (Hospitalization)
  Sender: FDA-Public Use
  Company Number: 2006UW08612

PATIENT
  Age: 72 Year
  Sex: Female

DRUGS (6)
  1. ARIMIDEX [Suspect]
     Indication: BREAST CANCER STAGE II
     Route: 048
     Dates: start: 20041201
  2. CORGARD [Concomitant]
     Route: 048
  3. LIPITOR [Concomitant]
     Route: 048
  4. SYNTHROID [Concomitant]
     Route: 048
  5. DETROL [Concomitant]
     Route: 048
  6. CARDIZEM LA [Concomitant]
     Route: 048

REACTIONS (4)
  - CEREBRAL HAEMORRHAGE TRAUMATIC [None]
  - CEREBROVASCULAR ACCIDENT [None]
  - HYPOAESTHESIA FACIAL [None]
  - ROAD TRAFFIC ACCIDENT [None]
